FAERS Safety Report 19151816 (Version 1)
Quarter: 2021Q2

REPORT INFORMATION
  Report Type: Spontaneous
  Country: MY (occurrence: MY)
  Receive Date: 20210419
  Receipt Date: 20210419
  Transmission Date: 20210717
  Serious: Yes (Hospitalization, Other)
  Sender: FDA-Public Use
  Company Number: MY-EPICPHARMA-MY-2021EPCLIT00417

PATIENT
  Age: 36 Year
  Sex: Male

DRUGS (10)
  1. LACOSAMIDE. [Concomitant]
     Active Substance: LACOSAMIDE
     Route: 065
  2. PROPOFOL. [Concomitant]
     Active Substance: PROPOFOL
     Route: 065
  3. THIOPENTAL SODIUM. [Concomitant]
     Active Substance: THIOPENTAL SODIUM
     Route: 065
  4. LEVETIRACETAM. [Concomitant]
     Active Substance: LEVETIRACETAM
     Route: 065
  5. MIDAZOLAM. [Concomitant]
     Active Substance: MIDAZOLAM
     Route: 065
  6. CLONAZEPAM. [Concomitant]
     Active Substance: CLONAZEPAM
     Route: 065
  7. CARBAMAZEPINE. [Concomitant]
     Active Substance: CARBAMAZEPINE
     Route: 065
  8. PHENYTOIN. [Suspect]
     Active Substance: PHENYTOIN
     Indication: STATUS EPILEPTICUS
     Route: 065
  9. PERAMPANEL [Concomitant]
     Active Substance: PERAMPANEL
     Route: 065
  10. SODIUM VALPROATE [Concomitant]
     Active Substance: VALPROATE SODIUM
     Route: 065

REACTIONS (1)
  - Drug ineffective [Unknown]
